FAERS Safety Report 12495379 (Version 1)
Quarter: 2016Q2

REPORT INFORMATION
  Report Type: Spontaneous
  Country: US (occurrence: US)
  Receive Date: 20160624
  Receipt Date: 20160624
  Transmission Date: 20160815
  Serious: No
  Sender: FDA-Public Use
  Company Number: US-SUN PHARMACEUTICAL INDUSTRIES LTD-2016US-112699

PATIENT
  Age: 63 Year
  Sex: Male

DRUGS (2)
  1. HALOG [Suspect]
     Active Substance: HALCINONIDE
     Indication: PSORIASIS
     Dosage: UNK
     Route: 065
  2. HALOG [Suspect]
     Active Substance: HALCINONIDE
     Indication: PSORIASIS
     Dosage: UNK
     Route: 065

REACTIONS (1)
  - Drug dispensing error [Unknown]

NARRATIVE: CASE EVENT DATE: 20160225
